FAERS Safety Report 25017187 (Version 1)
Quarter: 2025Q1

REPORT INFORMATION
  Report Type: Spontaneous
  Country: RU (occurrence: RU)
  Receive Date: 20250227
  Receipt Date: 20250227
  Transmission Date: 20250408
  Serious: Yes (Hospitalization)
  Sender: AMGEN
  Company Number: RU-AMGEN-RUSSP2025036936

PATIENT
  Age: 75 Year
  Sex: Female

DRUGS (7)
  1. CINACALCET HYDROCHLORIDE [Suspect]
     Active Substance: CINACALCET HYDROCHLORIDE
     Indication: Hypercalcaemia
     Dosage: 60 MILLIGRAM, QD
     Route: 065
     Dates: start: 201910
  2. CINACALCET HYDROCHLORIDE [Suspect]
     Active Substance: CINACALCET HYDROCHLORIDE
     Indication: Prophylaxis
     Dosage: 90 MILLIGRAM, QD
     Route: 065
     Dates: start: 202307
  3. CINACALCET HYDROCHLORIDE [Suspect]
     Active Substance: CINACALCET HYDROCHLORIDE
     Dosage: 120 MILLIGRAM, QD
     Route: 065
  4. PROLIA [Suspect]
     Active Substance: DENOSUMAB
     Indication: Prophylaxis
     Route: 065
     Dates: start: 202307
  5. XGEVA [Suspect]
     Active Substance: DENOSUMAB
     Indication: Hypercalcaemia
     Route: 065
  6. SALINE [Concomitant]
     Active Substance: SODIUM CHLORIDE
     Indication: Prophylaxis
     Dates: start: 201910
  7. SALINE [Concomitant]
     Active Substance: SODIUM CHLORIDE
     Indication: Hypercalcaemia
     Route: 065
     Dates: start: 202307

REACTIONS (14)
  - Nephrolithiasis [Unknown]
  - Hydronephrosis [Unknown]
  - Parathyroid tumour malignant [Unknown]
  - Hyperparathyroidism primary [Unknown]
  - Osteoporosis [Unknown]
  - Glomerular filtration rate decreased [Unknown]
  - Pyelocaliectasis [Unknown]
  - Ureteric dilatation [Unknown]
  - Spinal compression fracture [Unknown]
  - Metastases to lung [Unknown]
  - Blood parathyroid hormone decreased [Unknown]
  - Hypercalcaemia [Unknown]
  - Drug ineffective [Unknown]
  - Off label use [Unknown]

NARRATIVE: CASE EVENT DATE: 20221001
